FAERS Safety Report 6825988-0 (Version None)
Quarter: 2010Q3

REPORT INFORMATION
  Report Type: 
  Country: None (occurrence: None)
  Receive Date: 20100709
  Receipt Date: 20100702
  Transmission Date: 20110219
  Serious: Yes (Hospitalization)
  Sender: FDA-Public Use
  Company Number: FR-JNJFOC-20100603814

PATIENT
  Sex: Female

DRUGS (14)
  1. KETODERM [Suspect]
     Indication: CANDIDIASIS
     Route: 061
  2. POLYGYNAX [Suspect]
     Indication: CANDIDIASIS
     Route: 067
  3. FUNGIZONE [Suspect]
     Indication: CANDIDIASIS
     Route: 048
  4. FAZOL [Suspect]
     Indication: CANDIDIASIS
     Route: 061
  5. FUROSEMIDE [Suspect]
     Indication: HYPERTENSION
     Route: 048
  6. ODRIK [Concomitant]
     Indication: PRODUCT USED FOR UNKNOWN INDICATION
     Route: 048
  7. ISOPTIN [Concomitant]
     Indication: PRODUCT USED FOR UNKNOWN INDICATION
     Route: 048
  8. TAHOR [Concomitant]
     Indication: HYPERCHOLESTEROLAEMIA
     Route: 048
  9. LEVOTHYROXINE SODIUM [Concomitant]
  10. VENTOLIN [Concomitant]
  11. SINGULAIR [Concomitant]
  12. BECLOMETHASONE DIPROPIONATE [Concomitant]
  13. NOVOMIX [Concomitant]
  14. PLAVIX [Concomitant]

REACTIONS (3)
  - ESCHERICHIA SEPSIS [None]
  - RENAL FAILURE ACUTE [None]
  - TOXIC EPIDERMAL NECROLYSIS [None]
